FAERS Safety Report 4538902-8 (Version None)
Quarter: 2004Q4

REPORT INFORMATION
  Report Type: 
  Country: None (occurrence: None)
  Receive Date: 20041222
  Receipt Date: 20041209
  Transmission Date: 20050328
  Serious: Yes (Hospitalization, Other)
  Sender: FDA-Public Use
  Company Number: USA041285715

PATIENT
  Age: 75 Year
  Sex: Male

DRUGS (2)
  1. FORTEO [Suspect]
     Indication: ARTHROPATHY
     Dosage: 20 UG/1 DAY
     Dates: start: 20031201, end: 20041207
  2. FORTEO [Suspect]
     Indication: BONE SCAN ABNORMAL
     Dosage: 20 UG/1 DAY
     Dates: start: 20031201, end: 20041207

REACTIONS (2)
  - MYOCARDIAL INFARCTION [None]
  - TREATMENT NONCOMPLIANCE [None]
